FAERS Safety Report 16301345 (Version 4)
Quarter: 2019Q2

REPORT INFORMATION
  Report Type: Spontaneous
  Country: BE (occurrence: BE)
  Receive Date: 20190510
  Receipt Date: 20190603
  Transmission Date: 20190711
  Serious: Yes (Hospitalization, Other)
  Sender: FDA-Public Use
  Company Number: BE-009507513-1905BEL004794

PATIENT
  Age: 43 Year
  Sex: Female

DRUGS (4)
  1. BETAMETHASONE SODIUM PHOSPHATE [Suspect]
     Active Substance: BETAMETHASONE SODIUM PHOSPHATE
     Indication: MATERNAL THERAPY TO ENHANCE FOETAL LUNG MATURITY
     Dosage: UNK
     Route: 065
  2. ATOSIBAN [Suspect]
     Active Substance: ATOSIBAN
     Indication: POSTPONEMENT OF PRETERM DELIVERY
     Dosage: UNK
     Route: 065
  3. NIFEDIPINE. [Suspect]
     Active Substance: NIFEDIPINE
     Indication: POSTPONEMENT OF PRETERM DELIVERY
     Dosage: UNK
     Route: 065
  4. LEVOTHYROXINE SODIUM. [Concomitant]
     Active Substance: LEVOTHYROXINE SODIUM
     Indication: HYPOTHYROIDISM
     Dosage: 50 MICROGRAM, UNK
     Route: 065

REACTIONS (2)
  - Acute pulmonary oedema [Recovering/Resolving]
  - Maternal exposure during pregnancy [Recovered/Resolved]
